FAERS Safety Report 25401864 (Version 1)
Quarter: 2025Q2

REPORT INFORMATION
  Report Type: Report from Study
  Country: PH (occurrence: PH)
  Receive Date: 20250605
  Receipt Date: 20250605
  Transmission Date: 20250717
  Serious: Yes (Hospitalization)
  Sender: OTSUKA
  Company Number: PH-MMM-Otsuka-CWMLROU1

PATIENT
  Sex: Male

DRUGS (2)
  1. TOLVAPTAN [Suspect]
     Active Substance: TOLVAPTAN
     Indication: Dysuria
     Dosage: 1 DF, TIW (15 MG 1 TABLET EVERY MONDAY, WEDNESDAY, AND FRIDAY)
     Route: 048
     Dates: end: 202503
  2. TOLVAPTAN [Suspect]
     Active Substance: TOLVAPTAN
     Indication: Blood creatinine increased

REACTIONS (2)
  - Dialysis [Unknown]
  - Product use in unapproved indication [Unknown]
